FAERS Safety Report 10427533 (Version 1)
Quarter: 2014Q3

REPORT INFORMATION
  Report Type: Spontaneous
  Country: US (occurrence: US)
  Receive Date: 20140903
  Receipt Date: 20140903
  Transmission Date: 20150326
  Serious: Yes (Other)
  Sender: FDA-Public Use
  Company Number: US-BAYER-2014-124247

PATIENT
  Age: 61 Year
  Sex: Male
  Weight: 70 kg

DRUGS (8)
  1. CUBICIN [Concomitant]
     Active Substance: DAPTOMYCIN
  2. AMICAR [Concomitant]
     Active Substance: AMINOCAPROIC ACID
  3. AVELOX [Suspect]
     Active Substance: MOXIFLOXACIN HYDROCHLORIDE
     Indication: PRODUCT USED FOR UNKNOWN INDICATION
     Route: 065
  4. ZOVIRAX [Concomitant]
     Active Substance: ACYCLOVIR
  5. INVANZ [Concomitant]
     Active Substance: ERTAPENEM SODIUM
  6. OXYCODONE [Concomitant]
     Active Substance: OXYCODONE
  7. VIAGRA [Concomitant]
     Active Substance: SILDENAFIL CITRATE
  8. PROTONIX [Concomitant]
     Active Substance: PANTOPRAZOLE SODIUM

REACTIONS (1)
  - Liver function test abnormal [Recovered/Resolved]

NARRATIVE: CASE EVENT DATE: 20140711
